FAERS Safety Report 21442453 (Version 1)
Quarter: 2022Q4

REPORT INFORMATION
  Report Type: Other
  Country: None (occurrence: CN)
  Receive Date: 20221011
  Receipt Date: 20221011
  Transmission Date: 20230112
  Serious: Yes (Hospitalization)
  Sender: FDA-Public Use
  Company Number: CN-Jiangsu Hengrui Medicine Co., Ltd.-2133710

PATIENT
  Sex: Female
  Weight: 74 kg

DRUGS (3)
  1. CYCLOPHOSPHAMIDE [Suspect]
     Active Substance: CYCLOPHOSPHAMIDE
     Indication: Breast neoplasm
     Route: 041
     Dates: start: 20220811, end: 20220811
  2. DOCETAXEL [Suspect]
     Active Substance: DOCETAXEL
     Route: 041
     Dates: start: 20220811, end: 20220811
  3. EPIRUBICIN HYDROCHLORIDE [Suspect]
     Active Substance: EPIRUBICIN HYDROCHLORIDE
     Route: 041
     Dates: start: 20220811, end: 20220811

REACTIONS (4)
  - Nausea [Recovered/Resolved]
  - Vomiting [Recovered/Resolved]
  - Dysphagia [Recovering/Resolving]
  - Myelosuppression [Recovering/Resolving]

NARRATIVE: CASE EVENT DATE: 20220814
